FAERS Safety Report 18222996 (Version 2)
Quarter: 2020Q3

REPORT INFORMATION
  Report Type: Report from Study
  Country: US (occurrence: US)
  Receive Date: 20200902
  Receipt Date: 20200925
  Transmission Date: 20201103
  Serious: Yes (Hospitalization, Other)
  Sender: FDA-Public Use
  Company Number: US-ASPEN-GLO2020US008447

PATIENT
  Age: 21 Year
  Sex: Male
  Weight: 95.3 kg

DRUGS (10)
  1. TIOGUANINE [Suspect]
     Active Substance: THIOGUANINE ANHYDROUS
     Indication: ACUTE LYMPHOCYTIC LEUKAEMIA
     Dosage: 120 MG, QD FOR 5 DAYS (DAY 29?42)
     Route: 048
     Dates: start: 20200717
  2. VINCRISTINE [Suspect]
     Active Substance: VINCRISTINE
     Indication: ACUTE LYMPHOCYTIC LEUKAEMIA
     Dosage: 2 MG, QD (DAY 1,8, 15, DAY 43, 50)
     Route: 042
     Dates: start: 20200619
  3. TIOGUANINE [Suspect]
     Active Substance: THIOGUANINE ANHYDROUS
     Dosage: 140 MG, QD FOR 2 DAYS (DAY 29?42)
     Route: 048
     Dates: start: 20200717
  4. RUXOLITINIB [Suspect]
     Active Substance: RUXOLITINIB
     Indication: ACUTE LYMPHOCYTIC LEUKAEMIA
     Dosage: 100 MG, BID X 14 DAYS (DAY 1. DAY 29)
     Route: 048
     Dates: start: 20200619
  5. METHOTREXATE. [Suspect]
     Active Substance: METHOTREXATE
     Indication: ACUTE LYMPHOCYTIC LEUKAEMIA
     Dosage: 15 MG, QD (DAY 1, DAY 29, DAY 36)
     Route: 037
     Dates: start: 20200619
  6. CYTARABINE. [Suspect]
     Active Substance: CYTARABINE
     Dosage: 156 MG, QD (DAYS 29?32?4, DAYS 36?39)
     Route: 058
     Dates: start: 20200717
  7. DOXORUBICIN [Suspect]
     Active Substance: DOXORUBICIN
     Indication: ACUTE LYMPHOCYTIC LEUKAEMIA
     Dosage: 52 MG, QD (DAY 1, DAY 8. DAY 15)
     Route: 042
     Dates: start: 20200619
  8. CYCLOPHOSPHAMIDE. [Suspect]
     Active Substance: CYCLOPHOSPHAMIDE
     Indication: ACUTE LYMPHOCYTIC LEUKAEMIA
     Dosage: 2080 MG, SINGLE (DAY 29)
     Route: 042
     Dates: start: 20200717
  9. DEXAMETHASONE. [Suspect]
     Active Substance: DEXAMETHASONE
     Indication: ACUTE LYMPHOCYTIC LEUKAEMIA
     Dosage: 10.5 MG, BID (DAY 1?7, DAYS 15?21)
     Route: 048
     Dates: start: 20200619
  10. CYTARABINE. [Suspect]
     Active Substance: CYTARABINE
     Indication: ACUTE LYMPHOCYTIC LEUKAEMIA
     Dosage: 156 MG, QD (DAYS 29?32?4, DAYS 36?39)
     Route: 042
     Dates: start: 20200717

REACTIONS (1)
  - Febrile neutropenia [Recovered/Resolved]

NARRATIVE: CASE EVENT DATE: 20200801
